FAERS Safety Report 12425492 (Version 2)
Quarter: 2016Q2

REPORT INFORMATION
  Report Type: Spontaneous
  Country: None (occurrence: US)
  Receive Date: 20160601
  Receipt Date: 20160630
  Transmission Date: 20160815
  Serious: No
  Sender: FDA-Public Use
  Company Number: US-MERZ NORTH AMERICA, INC.-16MRZ-00327

PATIENT
  Sex: Male
  Weight: 72.64 kg

DRUGS (1)
  1. XEOMIN [Suspect]
     Active Substance: INCOBOTULINUMTOXINA
     Indication: HYPERHIDROSIS
     Dosage: 50 UNITS LEFT AXILLA?50 UNITS RIGHT AXILLA
     Dates: start: 2012, end: 20160202

REACTIONS (1)
  - Drug ineffective [None]
